FAERS Safety Report 19965546 (Version 3)
Quarter: 2021Q4

REPORT INFORMATION
  Report Type: Spontaneous
  Country: CN (occurrence: None)
  Receive Date: 20211018
  Receipt Date: 20211110
  Transmission Date: 20220303
  Serious: Yes (Death)
  Sender: FDA-Public Use
  Company Number: 2021A776054

PATIENT
  Age: 39 Year
  Sex: Male
  Weight: 70 kg

DRUGS (2)
  1. IMFINZI [Suspect]
     Active Substance: DURVALUMAB
     Indication: Squamous cell carcinoma of lung
     Dosage: 2X500MG/10ML, 1X120MG/2.4ML, LAST TREATMENT DATE WAS 29-MAY2020, THE LAST DOSE WAS 1120MG/CYCLE
     Route: 042
     Dates: start: 20200427
  2. CATEQUENTINIB [Concomitant]
     Active Substance: CATEQUENTINIB
     Route: 065
     Dates: start: 202005, end: 202104

REACTIONS (2)
  - Oncologic complication [Fatal]
  - Cachexia [Unknown]

NARRATIVE: CASE EVENT DATE: 20210421
